FAERS Safety Report 8282201-8 (Version None)
Quarter: 2012Q2

REPORT INFORMATION
  Report Type: 
  Country: None (occurrence: None)
  Receive Date: 20120413
  Receipt Date: 20120409
  Transmission Date: 20120825
  Serious: Yes (Other)
  Sender: FDA-Public Use
  Company Number: US-BAYER-2012-018756

PATIENT
  Age: 51 Year
  Sex: Female
  Weight: 67.12 kg

DRUGS (1)
  1. GADAVIST [Suspect]
     Indication: NUCLEAR MAGNETIC RESONANCE IMAGING BREAST
     Dosage: 7 ML, ONCE
     Route: 042
     Dates: start: 20111219

REACTIONS (3)
  - URTICARIA [None]
  - MALAISE [None]
  - LIP SWELLING [None]
